FAERS Safety Report 12070911 (Version 1)
Quarter: 2016Q1

REPORT INFORMATION
  Report Type: Report from Study
  Country: KE (occurrence: KE)
  Receive Date: 20160211
  Receipt Date: 20160211
  Transmission Date: 20160526
  Serious: Yes (Death, Hospitalization, Other)
  Sender: FDA-Public Use
  Company Number: KE-GILEAD-2015-0175436

PATIENT
  Age: 27 Year
  Sex: Female
  Weight: 46.2 kg

DRUGS (4)
  1. EFAVIRENZ/EMTRICITABINE/TENOFOVIR DISOPROXIL FUMARATE [Suspect]
     Active Substance: EFAVIRENZ\EMTRICITABINE\TENOFOVIR DISOPROXIL FUMARATE
     Indication: KAPOSI^S SARCOMA AIDS RELATED
     Dosage: 1100 MG, QHS
     Route: 048
     Dates: start: 20150917, end: 20151209
  2. VINCRISTINE SULFATE. [Suspect]
     Active Substance: VINCRISTINE SULFATE
     Indication: KAPOSI^S SARCOMA AIDS RELATED
     Dosage: 2 MG, Q3WK
     Route: 042
     Dates: start: 20150917, end: 20151209
  3. SEPTRIN [Concomitant]
     Active Substance: SULFAMETHOXAZOLE\TRIMETHOPRIM
     Dosage: UNK
     Dates: end: 20150928
  4. BLEOMYCIN [Suspect]
     Active Substance: BLEOMYCIN SULFATE
     Indication: KAPOSI^S SARCOMA AIDS RELATED
     Dosage: 21 MG, Q3WK
     Route: 042
     Dates: start: 20150917, end: 20151209

REACTIONS (3)
  - Pleural effusion [Fatal]
  - Anaemia [Fatal]
  - Ascites [Fatal]

NARRATIVE: CASE EVENT DATE: 20150928
